FAERS Safety Report 23095409 (Version 1)
Quarter: 2023Q4

REPORT INFORMATION
  Report Type: Spontaneous
  Country: US (occurrence: US)
  Receive Date: 20231023
  Receipt Date: 20231023
  Transmission Date: 20240110
  Serious: Yes (Other)
  Sender: FDA-Public Use
  Company Number: US-MYLANLABS-2023M1108358

PATIENT
  Age: 37 Year
  Sex: Female

DRUGS (19)
  1. BUPRENORPHINE HYDROCHLORIDE\NALOXONE HYDROCHLORIDE [Suspect]
     Active Substance: BUPRENORPHINE HYDROCHLORIDE\NALOXONE HYDROCHLORIDE
     Indication: Pelvic pain
     Dosage: UNK, BID, 2-0.5 MG- 1/4 MICROFILM (WEEK 1)
     Route: 060
  2. BUPRENORPHINE HYDROCHLORIDE\NALOXONE HYDROCHLORIDE [Suspect]
     Active Substance: BUPRENORPHINE HYDROCHLORIDE\NALOXONE HYDROCHLORIDE
     Dosage: UNK, TID,2-0.5 MG- 1/4 MICROFILM (WEEK 2)- 3 TIMES DAILY
     Route: 060
  3. BUPRENORPHINE HYDROCHLORIDE\NALOXONE HYDROCHLORIDE [Suspect]
     Active Substance: BUPRENORPHINE HYDROCHLORIDE\NALOXONE HYDROCHLORIDE
     Dosage: UNK, INITIALLY DRUG WAS GRADUALLY TAPERED AND THEN WITHDRAWN
     Route: 060
  4. BUPRENORPHINE [Suspect]
     Active Substance: BUPRENORPHINE
     Indication: Pelvic pain
     Dosage: 0.5 DOSAGE FORM, BID, WEEK 3
     Route: 060
  5. BUPRENORPHINE [Suspect]
     Active Substance: BUPRENORPHINE
     Dosage: 1 DOSAGE FORM, BID, WITH NOON 1/2 TABLET FOR 4 DAYS OF WEEK 4
     Route: 060
  6. BUPRENORPHINE [Suspect]
     Active Substance: BUPRENORPHINE
     Dosage: 1 DOSAGE FORM, TID, 3 TIMES DAILY FOR REMAINING 3 DAYS OF WEEK 4
     Route: 060
  7. BUPRENORPHINE [Suspect]
     Active Substance: BUPRENORPHINE
     Dosage: 1 DOSAGE FORM, PRN (3 TIMES DAILY- WEEK 5 AND WEEK 6 (WITH 1/2 TABLET DAILY AS NEEDED))
     Route: 060
  8. BUPRENORPHINE [Suspect]
     Active Substance: BUPRENORPHINE
     Dosage: 10 MILLIGRAM, QD, DOSE WAS INCREASED TO 10 MG/DAY IN DIVIDED DOSES (AT 28 WEEKS OF GESTATION) AND CO
     Route: 060
  9. MORPHINE SULFATE [Suspect]
     Active Substance: MORPHINE SULFATE
     Indication: Pelvic pain
     Dosage: 15 MILLIGRAM, BID, EXTENDED RELEASE- WEEK 1
     Route: 048
  10. MORPHINE SULFATE [Suspect]
     Active Substance: MORPHINE SULFATE
     Dosage: 15 MILLIGRAM, QD, EXTENDED RELEASE- WEEK 2 AT NIGHT
     Route: 048
  11. MORPHINE SULFATE [Suspect]
     Active Substance: MORPHINE SULFATE
     Dosage: UNK, DRUG GRADUALLY WITHDRAWN
     Route: 048
  12. OXYCODONE [Suspect]
     Active Substance: OXYCODONE
     Indication: Pelvic pain
     Dosage: 6 DOSAGE FORM, QD, WEEK-1 AND 2
     Route: 065
  13. OXYCODONE [Suspect]
     Active Substance: OXYCODONE
     Dosage: 5.5 DOSAGE FORM, QD, FOR 4 DAYS OF WEEK 3
     Route: 065
  14. OXYCODONE [Suspect]
     Active Substance: OXYCODONE
     Dosage: 5 DOSAGE FORM, QD, FOR REMAINING 3 DAYS OF WEEK 3
     Route: 065
  15. OXYCODONE [Suspect]
     Active Substance: OXYCODONE
     Dosage: 4 DOSAGE FORM, QD, FOR 4 DAYS OF WEEK 4
     Route: 065
  16. OXYCODONE [Suspect]
     Active Substance: OXYCODONE
     Dosage: 3 DOSAGE FORM, QD, FOR REMAINING 3 DAYS OF WEEK 4
     Route: 065
  17. OXYCODONE [Suspect]
     Active Substance: OXYCODONE
     Dosage: 2.5 DOSAGE FORM, QD, FOR 4 DAYS OF WEEK 5
     Route: 065
  18. OXYCODONE [Suspect]
     Active Substance: OXYCODONE
     Dosage: 2 DOSAGE FORM, QD, FOR REMAINING 3 DAYS OF WEEK 5
     Route: 065
  19. OXYCODONE [Suspect]
     Active Substance: OXYCODONE
     Dosage: 1 DOSAGE FORM, QD, FOR 4 DAYS OF WEEK 6 FOLLOWED BY ITS DISCONTINUATION
     Route: 065

REACTIONS (3)
  - Maternal exposure during pregnancy [Recovered/Resolved]
  - Off label use [Unknown]
  - Normal newborn [Unknown]
